FAERS Safety Report 17851865 (Version 1)
Quarter: 2020Q2

REPORT INFORMATION
  Report Type: Spontaneous
  Country: AU (occurrence: AU)
  Receive Date: 20200602
  Receipt Date: 20200602
  Transmission Date: 20200714
  Serious: Yes (Hospitalization, Other)
  Sender: FDA-Public Use
  Company Number: PHHY2014AU049538

PATIENT
  Age: 50 Year
  Sex: Female

DRUGS (9)
  1. PONATINIB [Suspect]
     Active Substance: PONATINIB
     Indication: CHRONIC MYELOID LEUKAEMIA
     Dosage: UNK
     Route: 065
     Dates: start: 201801
  2. HYDROXYUREA. [Concomitant]
     Active Substance: HYDROXYUREA
     Indication: CHRONIC MYELOID LEUKAEMIA
     Route: 065
  3. TASIGNA [Suspect]
     Active Substance: NILOTINIB
     Indication: CHRONIC MYELOID LEUKAEMIA
     Dosage: 150 MG, BID
     Route: 048
     Dates: start: 201401, end: 20140409
  4. GLIVEC [Suspect]
     Active Substance: IMATINIB MESYLATE
     Indication: CHRONIC MYELOID LEUKAEMIA
     Route: 065
  5. DASATINIB. [Suspect]
     Active Substance: DASATINIB
     Indication: CHRONIC MYELOID LEUKAEMIA
     Route: 065
  6. LERCANIDIPINE [Concomitant]
     Active Substance: LERCANIDIPINE
     Indication: PRODUCT USED FOR UNKNOWN INDICATION
     Dosage: 20 MG, UNK
     Route: 048
  7. TASIGNA [Suspect]
     Active Substance: NILOTINIB
     Dosage: 300 MG, BID
     Route: 048
     Dates: start: 20140410, end: 20140415
  8. INTERFERON BETA-1B [Suspect]
     Active Substance: INTERFERON BETA-1B
     Indication: CHRONIC MYELOID LEUKAEMIA
     Route: 065
  9. PONATINIB [Suspect]
     Active Substance: PONATINIB
     Dosage: 15 MG, BID
     Route: 065

REACTIONS (15)
  - Chronic myeloid leukaemia [Unknown]
  - Ischaemic stroke [Recovering/Resolving]
  - Nausea [Unknown]
  - Ataxia [Unknown]
  - Suicidal behaviour [Unknown]
  - Malignant neoplasm progression [Unknown]
  - Arthralgia [Unknown]
  - Amnesia [Unknown]
  - Headache [Unknown]
  - Dizziness [Unknown]
  - Mental disorder [Unknown]
  - Gait disturbance [Unknown]
  - Face oedema [Unknown]
  - Rash [Recovered/Resolved]
  - Cerebellar infarction [Unknown]

NARRATIVE: CASE EVENT DATE: 2014
